FAERS Safety Report 11544815 (Version 1)
Quarter: 2015Q3

REPORT INFORMATION
  Report Type: Report from Study
  Country: DE (occurrence: DE)
  Receive Date: 20150924
  Receipt Date: 20150924
  Transmission Date: 20151125
  Serious: Yes (Other)
  Sender: FDA-Public Use
  Company Number: DE-CELGENE-DEU-2015086600

PATIENT
  Age: 25 Year
  Sex: Male

DRUGS (3)
  1. REVLIMID [Suspect]
     Active Substance: LENALIDOMIDE
     Route: 048
     Dates: start: 20090831, end: 20090916
  2. REVLIMID [Suspect]
     Active Substance: LENALIDOMIDE
     Route: 048
     Dates: start: 20091001, end: 20100106
  3. REVLIMID [Suspect]
     Active Substance: LENALIDOMIDE
     Indication: HODGKIN^S DISEASE
     Route: 048
     Dates: start: 20090706, end: 20090804

REACTIONS (7)
  - Graft versus host disease in gastrointestinal tract [Recovered/Resolved]
  - Herpes zoster oticus [Unknown]
  - Gastroenteritis salmonella [Recovered/Resolved]
  - Night sweats [Recovering/Resolving]
  - Hodgkin^s disease recurrent [Unknown]
  - Back pain [Recovering/Resolving]
  - Graft versus host disease in skin [Recovered/Resolved]

NARRATIVE: CASE EVENT DATE: 2009
